FAERS Safety Report 6688846-0 (Version None)
Quarter: 2010Q2

REPORT INFORMATION
  Report Type: 
  Country: None (occurrence: None)
  Receive Date: 20100420
  Receipt Date: 20100406
  Transmission Date: 20101027
  Serious: Yes (Other)
  Sender: FDA-Public Use
  Company Number: CA-ELI_LILLY_AND_COMPANY-CA201002000581

PATIENT
  Age: 71 Year
  Sex: Male

DRUGS (2)
  1. CIALIS [Suspect]
     Indication: ERECTILE DYSFUNCTION
     Dosage: 20 MG, AS NEEDED
     Route: 065
     Dates: start: 20050101
  2. CARDURA [Concomitant]
     Dosage: 10 MG, UNK
     Dates: start: 19950101

REACTIONS (3)
  - GASTROINTESTINAL DISORDER [None]
  - MIGRAINE WITHOUT AURA [None]
  - VISUAL ACUITY REDUCED TRANSIENTLY [None]
